FAERS Safety Report 6411877-2 (Version None)
Quarter: 2009Q4

REPORT INFORMATION
  Report Type: 
  Country: None (occurrence: None)
  Receive Date: 20091023
  Receipt Date: 20091014
  Transmission Date: 20100525
  Serious: Yes (Life-Threatening)
  Sender: FDA-Public Use
  Company Number: JP-ASTRAZENECA-2009SE21383

PATIENT
  Sex: Male

DRUGS (4)
  1. BLOPRESS [Suspect]
     Indication: HYPERTENSION
     Route: 048
     Dates: end: 20081201
  2. BLOPRESS [Suspect]
     Route: 048
  3. NU-LOTAN [Suspect]
     Indication: HYPERTENSION
     Route: 048
     Dates: end: 20081201
  4. IRBETAN [Concomitant]
     Indication: HYPERTENSION
     Route: 048
     Dates: end: 20081201

REACTIONS (1)
  - ALTERED STATE OF CONSCIOUSNESS [None]
